FAERS Safety Report 20711571 (Version 2)
Quarter: 2022Q2

REPORT INFORMATION
  Report Type: Spontaneous
  Country: BR (occurrence: BR)
  Receive Date: 20220414
  Receipt Date: 20220523
  Transmission Date: 20220720
  Serious: Yes (Other)
  Sender: FDA-Public Use
  Company Number: BR-TAKEDA-2022TUS024638

PATIENT
  Sex: Female
  Weight: 59 kg

DRUGS (3)
  1. LISDEXAMFETAMINE DIMESYLATE [Suspect]
     Active Substance: LISDEXAMFETAMINE DIMESYLATE
     Indication: Attention deficit hyperactivity disorder
     Dosage: 1 DOSAGE FORM, QD
     Route: 065
     Dates: start: 2021
  2. LISDEXAMFETAMINE DIMESYLATE [Suspect]
     Active Substance: LISDEXAMFETAMINE DIMESYLATE
     Dosage: 1 DOSAGE FORM, QD
     Route: 065
     Dates: start: 2021
  3. Revoc [Concomitant]
     Dosage: 50 MILLIGRAM, QD
     Route: 048

REACTIONS (6)
  - Arrhythmia [Unknown]
  - Tachyarrhythmia [Unknown]
  - Insomnia [Recovered/Resolved]
  - Somnolence [Unknown]
  - Therapeutic product effect incomplete [Unknown]
  - Incorrect dosage administered [Unknown]
